FAERS Safety Report 9780932 (Version 1)
Quarter: 2013Q4

REPORT INFORMATION
  Report Type: Spontaneous
  Country: FR (occurrence: None)
  Receive Date: 20131220
  Receipt Date: 20131220
  Transmission Date: 20140711
  Serious: Yes (Hospitalization)
  Sender: FDA-Public Use
  Company Number: AUR-APL-2013-10523

PATIENT
  Age: 84 Year
  Sex: Male

DRUGS (9)
  1. RAMIPRIL [Suspect]
     Indication: CARDIAC FAILURE
     Route: 048
  2. BISOPROLOL [Suspect]
     Indication: CARDIAC FAILURE
     Route: 048
  3. FUROSEMIDE [Suspect]
     Indication: CARDIAC FAILURE
     Dosage: 180 MG (60 MG, 3 IN 1 D)
     Route: 048
  4. TEMESTA [Suspect]
     Indication: ANXIETY
     Route: 048
  5. NAFTIDROFURYL OXALATE [Suspect]
     Indication: PRODUCT USED FOR UNKNOWN INDICATION
     Route: 048
  6. STILNOX [Suspect]
     Indication: INSOMNIA
     Route: 048
  7. PRAVASTATIN (PRAVASTATIN) [Concomitant]
  8. COUMADIN (WARFARIN SODIUM) [Concomitant]
  9. HIRUCREME (HIRUDIN) [Concomitant]

REACTIONS (1)
  - Fall [None]
